FAERS Safety Report 4297265-6 (Version None)
Quarter: 2004Q1

REPORT INFORMATION
  Report Type: 
  Country: None (occurrence: None)
  Receive Date: 20040211
  Receipt Date: 20040203
  Transmission Date: 20041129
  Serious: Yes (Hospitalization, Disabling)
  Sender: FDA-Public Use
  Company Number: FR-BRISTOL-MYERS SQUIBB COMPANY-12494829

PATIENT
  Age: 74 Year
  Sex: Male

DRUGS (1)
  1. ELISOR [Suspect]
     Route: 048

REACTIONS (1)
  - TENDON RUPTURE [None]
